FAERS Safety Report 5173415-4 (Version None)
Quarter: 2006Q4

REPORT INFORMATION
  Report Type: 
  Country: None (occurrence: None)
  Receive Date: 20061207
  Receipt Date: 20061207
  Transmission Date: 20070319
  Serious: No
  Sender: FDA-Public Use
  Company Number: None

PATIENT
  Age: 52 Year
  Sex: Male
  Weight: 109.8 kg

DRUGS (1)
  1. PHENTERMINE [Suspect]
     Indication: WEIGHT CONTROL
     Dosage: UNK  DAILY  PO
     Route: 048
     Dates: start: 20060715, end: 20060729

REACTIONS (8)
  - ARTERIOGRAM ABNORMAL [None]
  - BLOOD PRESSURE INCREASED [None]
  - CHEST PAIN [None]
  - ECCHYMOSIS [None]
  - EJECTION FRACTION DECREASED [None]
  - HAEMOGLOBIN DECREASED [None]
  - LOSS OF CONSCIOUSNESS [None]
  - SYNCOPE [None]
